FAERS Safety Report 7608815-3 (Version None)
Quarter: 2011Q3

REPORT INFORMATION
  Report Type: 
  Country: None (occurrence: None)
  Receive Date: 20110714
  Receipt Date: 20091029
  Transmission Date: 20111222
  Serious: Yes (Hospitalization)
  Sender: FDA-Public Use
  Company Number: GB-AMGEN-QUU372034

PATIENT

DRUGS (2)
  1. UNSPECIFIED ANTINEOPLASTIC AGENT [Concomitant]
     Dosage: UNK UNK, Q3WK
  2. NEULASTA [Suspect]
     Indication: CHEMOTHERAPY
     Dosage: UNK UNK, UNK
     Route: 065

REACTIONS (1)
  - FEBRILE NEUTROPENIA [None]
